FAERS Safety Report 9123781 (Version 1)
Quarter: 2013Q1

REPORT INFORMATION
  Report Type: Report from Study
  Country: IT (occurrence: IT)
  Receive Date: 20130227
  Receipt Date: 20130227
  Transmission Date: 20140127
  Serious: Yes (Hospitalization)
  Sender: FDA-Public Use
  Company Number: IT-BRISTOL-MYERS SQUIBB COMPANY-17419474

PATIENT
  Age: 66 Year
  Sex: Male
  Weight: 76.7 kg

DRUGS (7)
  1. BLINDED ALD518 [Suspect]
     Indication: STOMATITIS
     Dosage: 19NOV2012-19NOV2012,10DEC2012-10DEC2012
     Route: 042
     Dates: start: 20121119
  2. CISPLATIN [Suspect]
     Indication: HEAD AND NECK CANCER
     Dosage: 20NOV2012-20NOV2012,10DEC2012-10DEC2012
     Route: 042
     Dates: start: 20121120
  3. PLACEBO [Suspect]
     Indication: STOMATITIS
     Dosage: 19NOV2012-19NOV2012,10DEC2012-10DEC2012
     Route: 042
     Dates: start: 20121119
  4. RAMIPRIL [Concomitant]
     Indication: HYPERTENSION
     Route: 048
     Dates: start: 20121119, end: 20121216
  5. HYDROCHLOROTHIAZIDE [Concomitant]
     Indication: HYPERTENSION
     Route: 048
     Dates: start: 20121119, end: 20121216
  6. PANTOPRAZOLE [Concomitant]
     Indication: PROPHYLAXIS
     Route: 048
     Dates: start: 20121120, end: 20121216
  7. NICARDIPINE [Concomitant]
     Indication: HYPERTENSION
     Dosage: 1 DF:6 UNITS NOS
     Route: 048
     Dates: start: 20121122, end: 20121216

REACTIONS (8)
  - Pneumonitis [Recovered/Resolved]
  - Aphagia [None]
  - Vomiting [None]
  - Weight decreased [None]
  - Dysgeusia [None]
  - Odynophagia [None]
  - General physical health deterioration [None]
  - Dehydration [None]
